FAERS Safety Report 4996857-6 (Version None)
Quarter: 2006Q2

REPORT INFORMATION
  Report Type: 
  Country: None (occurrence: None)
  Receive Date: 20060509
  Receipt Date: 20060327
  Transmission Date: 20061013
  Serious: Yes (Disabling, Other)
  Sender: FDA-Public Use
  Company Number: PHRM2006FR01204

PATIENT
  Age: 61 Year
  Sex: Female
  Weight: 45 kg

DRUGS (3)
  1. ZOMETA [Suspect]
     Indication: METASTASES TO BONE
     Dosage: 4 MG, QMO
     Route: 042
     Dates: start: 20030319, end: 20060101
  2. FEMARA [Concomitant]
     Indication: BREAST CANCER
  3. TAMOXIFEN CITRATE [Concomitant]
     Indication: BREAST CANCER

REACTIONS (4)
  - DYSGEUSIA [None]
  - OSTEOLYSIS [None]
  - OSTEONECROSIS [None]
  - PAIN IN JAW [None]
